FAERS Safety Report 10004519 (Version 2)
Quarter: 2014Q2

REPORT INFORMATION
  Report Type: Spontaneous
  Country: US (occurrence: US)
  Receive Date: 20140312
  Receipt Date: 20140404
  Transmission Date: 20141212
  Serious: Yes (Other)
  Sender: FDA-Public Use
  Company Number: US-PURDUE-USA-2014-0111942

PATIENT
  Sex: Female

DRUGS (5)
  1. OXYCONTIN (NDA 22-272) [Suspect]
     Indication: OSTEOARTHRITIS
     Dosage: 80 MG, BID
     Route: 048
     Dates: start: 2002
  2. FORTEO [Concomitant]
     Indication: OSTEOPOROSIS
  3. FORTEO [Concomitant]
     Indication: OSTEOPENIA
  4. CALCIUM [Concomitant]
     Indication: OSTEOPOROSIS
  5. CALCIUM [Concomitant]
     Indication: OSTEOPENIA

REACTIONS (2)
  - Osteopenia [Unknown]
  - Osteoporosis [Unknown]
